FAERS Safety Report 7099698-1 (Version None)
Quarter: 2011Q1

REPORT INFORMATION
  Report Type: 
  Country: None (occurrence: None)
  Receive Date: 20101112
  Receipt Date: 20101104
  Transmission Date: 20110831
  Serious: Yes (Hospitalization)
  Sender: FDA-Public Use
  Company Number: ES-BAYER-201044936GPV

PATIENT
  Age: 82 Year
  Sex: Male
  Weight: 74 kg

DRUGS (8)
  1. ATORVASTATIN CALCIUM [Interacting]
     Indication: ACUTE CORONARY SYNDROME
     Dosage: 1/ 24 H.
     Route: 048
     Dates: start: 20100706, end: 20100712
  2. PANTOPRAZOLE SODIUM [Interacting]
     Indication: PROPHYLAXIS AGAINST GASTROINTESTINAL ULCER
     Dosage: 1/ 24 H.
     Route: 048
     Dates: start: 20100709
  3. ISOSORBIDE MONONITRATE [Interacting]
     Indication: ACUTE CORONARY SYNDROME
     Dosage: 2/ 24 H.
     Route: 048
     Dates: start: 20100706, end: 20100713
  4. NORVASC [Interacting]
     Indication: ANGINA PECTORIS
     Dosage: 1/24 H.
     Route: 048
     Dates: start: 20100706, end: 20100730
  5. PLAVIX [Interacting]
     Indication: ACUTE CORONARY SYNDROME
     Dosage: 1/24 H.
     Route: 048
     Dates: start: 20100709, end: 20100714
  6. ASPIRIN [Suspect]
     Indication: ACUTE CORONARY SYNDROME
     Dosage: 1/ 24 H.
     Route: 048
     Dates: start: 20100706
  7. DISTRANEURINE CAPSULAS , 30 CAPSULAS [Interacting]
     Indication: AGITATION
     Route: 048
     Dates: start: 20100706, end: 20100707
  8. TENORMIN [Interacting]
     Dosage: 1/ 24 H.
     Route: 048
     Dates: start: 20100706

REACTIONS (1)
  - HEPATITIS CHOLESTATIC [None]
